FAERS Safety Report 18973336 (Version 3)
Quarter: 2021Q2

REPORT INFORMATION
  Report Type: Spontaneous
  Country: US (occurrence: US)
  Receive Date: 20210305
  Receipt Date: 20210412
  Transmission Date: 20210717
  Serious: Yes (Hospitalization, Other)
  Sender: FDA-Public Use
  Company Number: US-PFIZER INC-2021234174

PATIENT
  Age: 73 Year
  Sex: Female

DRUGS (2)
  1. XELJANZ [Suspect]
     Active Substance: TOFACITINIB CITRATE
     Dosage: 5 MG, 2X/DAY
     Route: 048
     Dates: start: 2020, end: 20210228
  2. XELJANZ [Suspect]
     Active Substance: TOFACITINIB CITRATE
     Indication: RHEUMATOID ARTHRITIS
     Dosage: 5 MG, 2X/DAY
     Route: 048
     Dates: start: 2020, end: 2020

REACTIONS (5)
  - Atrial fibrillation [Unknown]
  - Dyspnoea [Not Recovered/Not Resolved]
  - Breast cancer [Unknown]
  - Pulmonary oedema [Unknown]
  - Memory impairment [Not Recovered/Not Resolved]
